FAERS Safety Report 5106910-4 (Version None)
Quarter: 2006Q3

REPORT INFORMATION
  Report Type: 
  Country: None (occurrence: None)
  Receive Date: 20060913
  Receipt Date: 20060901
  Transmission Date: 20061208
  Serious: Yes (Other)
  Sender: FDA-Public Use
  Company Number: 2006-BP-10387RO

PATIENT
  Sex: Female

DRUGS (6)
  1. DEXAMETHASONE TAB [Suspect]
     Indication: NON-HODGKIN'S LYMPHOMA
  2. IDARUBICIN HCL [Suspect]
     Indication: NON-HODGKIN'S LYMPHOMA
  3. CHLORAMBUCIL (CHLORAMBUCIL) [Suspect]
     Indication: NON-HODGKIN'S LYMPHOMA
  4. FLUDARABINE PHOSPHATE [Suspect]
     Indication: NON-HODGKIN'S LYMPHOMA
     Dates: start: 20030901
  5. CYCLOPHOSPHAMIDE [Suspect]
     Indication: NON-HODGKIN'S LYMPHOMA
     Dates: start: 20030901
  6. RITUXIMAB (RITUXIMAB) [Suspect]
     Indication: NON-HODGKIN'S LYMPHOMA
     Dates: start: 20030901

REACTIONS (5)
  - BONE MARROW FAILURE [None]
  - CYTOGENETIC ANALYSIS ABNORMAL [None]
  - MYELODYSPLASTIC SYNDROME [None]
  - NON-HODGKIN'S LYMPHOMA RECURRENT [None]
  - PANCYTOPENIA [None]
